FAERS Safety Report 17907115 (Version 1)
Quarter: 2020Q2

REPORT INFORMATION
  Report Type: Report from Study
  Country: US (occurrence: US)
  Receive Date: 20200617
  Receipt Date: 20200617
  Transmission Date: 20200714
  Serious: Yes (Other)
  Sender: FDA-Public Use
  Company Number: US-MYLANLABS-2018M1069301

PATIENT
  Sex: Male
  Weight: 83 kg

DRUGS (5)
  1. OMEPRAZOLE. [Concomitant]
     Active Substance: OMEPRAZOLE
     Dosage: 20 MILLIGRAM, QOD
  2. VALSARTAN. [Concomitant]
     Active Substance: VALSARTAN
     Indication: HYPERTENSION
  3. GLATIRAMER ACETATE INJECTION [Suspect]
     Active Substance: GLATIRAMER ACETATE
     Indication: RELAPSING-REMITTING MULTIPLE SCLEROSIS
     Dosage: 20 MG, QD
     Route: 058
  4. GLATIRAMER ACETATE INJECTION [Suspect]
     Active Substance: GLATIRAMER ACETATE
     Dosage: 40 MILLIGRAM, 3XW
     Route: 058
     Dates: start: 201809, end: 202004
  5. ATORVASTATIN [Concomitant]
     Active Substance: ATORVASTATIN
     Dosage: 40 MILLIGRAM

REACTIONS (10)
  - Injection site mass [Unknown]
  - Muscle spasms [Unknown]
  - Cough [Unknown]
  - Temperature intolerance [Unknown]
  - Urinary incontinence [Recovered/Resolved]
  - Loss of consciousness [Recovering/Resolving]
  - Anal incontinence [Recovered/Resolved]
  - Therapeutic product effect incomplete [Unknown]
  - Paralysis [Recovered/Resolved]
  - Injection site pain [Unknown]
